FAERS Safety Report 20602919 (Version 2)
Quarter: 2022Q1

REPORT INFORMATION
  Report Type: Spontaneous
  Country: US (occurrence: US)
  Receive Date: 20220316
  Receipt Date: 20220325
  Transmission Date: 20220424
  Serious: Yes (Hospitalization, Other)
  Sender: FDA-Public Use
  Company Number: US-PFIZER INC-202200404104

PATIENT
  Sex: Female

DRUGS (2)
  1. TOFACITINIB [Suspect]
     Active Substance: TOFACITINIB
     Indication: Colitis ulcerative
     Dosage: 10 MG, 3X/DAY
  2. TOFACITINIB [Suspect]
     Active Substance: TOFACITINIB
     Dosage: 10 MG, 2X/DAY

REACTIONS (2)
  - Colitis ulcerative [Unknown]
  - Off label use [Unknown]
